FAERS Safety Report 7990714-9 (Version None)
Quarter: 2011Q4

REPORT INFORMATION
  Report Type: 
  Country: None (occurrence: None)
  Receive Date: 20111219
  Receipt Date: 20111212
  Transmission Date: 20120403
  Serious: Yes (Hospitalization)
  Sender: FDA-Public Use
  Company Number: US-BAYER-2011-042745

PATIENT
  Age: 25 Year
  Sex: Female
  Weight: 92.517 kg

DRUGS (4)
  1. YASMIN [Suspect]
     Indication: CONTRACEPTION
     Dosage: UNK
     Route: 048
     Dates: start: 20050301, end: 20061201
  2. YAZ [Suspect]
     Dosage: UNK
     Route: 048
     Dates: start: 20090501, end: 20100701
  3. YASMIN [Suspect]
     Dosage: UNK
     Route: 048
     Dates: start: 20070601, end: 20090501
  4. YAZ [Suspect]
     Indication: CONTRACEPTION
     Dosage: UNK
     Route: 048
     Dates: start: 20070301, end: 20070601

REACTIONS (6)
  - PAIN [None]
  - GALLBLADDER DISORDER [None]
  - INJURY [None]
  - EMOTIONAL DISTRESS [None]
  - CHOLECYSTITIS CHRONIC [None]
  - ANXIETY [None]
